FAERS Safety Report 18103179 (Version 1)
Quarter: 2020Q3

REPORT INFORMATION
  Report Type: Spontaneous
  Country: US (occurrence: US)
  Receive Date: 20200802
  Receipt Date: 20200802
  Transmission Date: 20201103
  Serious: Yes (Other)
  Sender: FDA-Public Use
  Company Number: None

PATIENT
  Age: 27 Year
  Sex: Female
  Weight: 56.25 kg

DRUGS (12)
  1. REMDESIVIR. [Suspect]
     Active Substance: REMDESIVIR
     Indication: COVID-19 PNEUMONIA
     Route: 042
     Dates: start: 20200722, end: 20200725
  2. NYSTATIN SWISH AND SWALLOW [Concomitant]
     Active Substance: NYSTATIN
     Dates: start: 20200721, end: 20200725
  3. ACETAMINOPHEN. [Concomitant]
     Active Substance: ACETAMINOPHEN
     Dates: start: 20200721, end: 20200727
  4. KETOROLAC [Concomitant]
     Active Substance: KETOROLAC TROMETHAMINE
     Dates: start: 20200720, end: 20200729
  5. BENZONATATE. [Concomitant]
     Active Substance: BENZONATATE
     Dates: start: 20200722, end: 20200725
  6. ONDANSETRON [Concomitant]
     Active Substance: ONDANSETRON
     Dates: start: 20200722, end: 20200727
  7. PROCHLORPERAZINE. [Concomitant]
     Active Substance: PROCHLORPERAZINE
     Dates: start: 20200723, end: 20200723
  8. ASPIRIN?ACETAMINOPHEN?CAFFEINE [Concomitant]
     Dates: start: 20200724, end: 20200725
  9. AZITHROMYCIN ANHYDROUS. [Concomitant]
     Active Substance: AZITHROMYCIN ANHYDROUS
     Dates: start: 20200720, end: 20200720
  10. CEFTRIAXONE. [Concomitant]
     Active Substance: CEFTRIAXONE
     Dates: start: 20200720, end: 20200720
  11. BUPROPRION [Concomitant]
     Active Substance: BUPROPION
     Dates: start: 20200721, end: 20200729
  12. LORAZEPAM. [Concomitant]
     Active Substance: LORAZEPAM
     Dates: start: 20200725, end: 20200729

REACTIONS (3)
  - Aspartate aminotransferase increased [None]
  - Alanine aminotransferase increased [None]
  - Therapy cessation [None]

NARRATIVE: CASE EVENT DATE: 20200726
